FAERS Safety Report 11383769 (Version 1)
Quarter: 2015Q3

REPORT INFORMATION
  Report Type: Spontaneous
  Country: BR (occurrence: BR)
  Receive Date: 20150814
  Receipt Date: 20150814
  Transmission Date: 20151125
  Serious: Yes (Other)
  Sender: FDA-Public Use
  Company Number: BR-GLAXOSMITHKLINE-BR2015GSK116133

PATIENT
  Sex: Female

DRUGS (1)
  1. NIQUITIN [Suspect]
     Active Substance: NICOTINE
     Indication: SMOKING CESSATION THERAPY
     Dosage: UNK
     Route: 065

REACTIONS (9)
  - Hypotension [Unknown]
  - Vomiting [Unknown]
  - Drug administration error [Unknown]
  - Haematemesis [Unknown]
  - Drug ineffective [Unknown]
  - Nausea [Unknown]
  - Haemorrhage [Unknown]
  - Headache [Unknown]
  - Dizziness [Unknown]
